FAERS Safety Report 7432334-0 (Version None)
Quarter: 2011Q2

REPORT INFORMATION
  Report Type: 
  Country: None (occurrence: None)
  Receive Date: 20110422
  Receipt Date: 20110330
  Transmission Date: 20111010
  Serious: Yes (Other)
  Sender: FDA-Public Use
  Company Number: US-PFIZER INC-US-WYE-H14558710

PATIENT
  Sex: Female
  Weight: 145.2 kg

DRUGS (5)
  1. DESVENLAFAXINE SUCCINATE MONOHYDRATE [Suspect]
     Indication: MAJOR DEPRESSION
     Dosage: 50.0 MG, 1X/DAY
     Route: 048
     Dates: start: 20100301
  2. ABILIFY [Concomitant]
     Route: 065
  3. TYLENOL W/ CODEINE NO. 2 [Concomitant]
     Indication: MIGRAINE
     Dosage: ^AS NEEDED^
     Route: 065
  4. LYRICA [Concomitant]
     Route: 065
  5. XANAX [Suspect]
     Indication: ANXIETY
     Dosage: ^1 MG QID PRN^
     Route: 065

REACTIONS (12)
  - CONTUSION [None]
  - CONDITION AGGRAVATED [None]
  - ANXIETY [None]
  - RESTLESSNESS [None]
  - HEADACHE [None]
  - DEPRESSED MOOD [None]
  - INSOMNIA [None]
  - BLOOD PRESSURE INCREASED [None]
  - MANIA [None]
  - MUSCLE SPASMS [None]
  - AGITATION [None]
  - CRYING [None]
